FAERS Safety Report 8553185-X (Version None)
Quarter: 2012Q3

REPORT INFORMATION
  Report Type: 
  Country: None (occurrence: None)
  Receive Date: 20120731
  Receipt Date: 20120723
  Transmission Date: 20120928
  Serious: Yes (Other)
  Sender: FDA-Public Use
  Company Number: US-JNJFOC-20120712744

PATIENT
  Sex: Male

DRUGS (2)
  1. ZYRTEC [Suspect]
     Indication: ECZEMA
     Route: 065
  2. ZYRTEC [Suspect]
     Indication: MULTIPLE ALLERGIES
     Route: 065

REACTIONS (2)
  - OFF LABEL USE [None]
  - PHOTOPSIA [None]
